FAERS Safety Report 25925552 (Version 1)
Quarter: 2025Q4

REPORT INFORMATION
  Report Type: Spontaneous
  Country: EU (occurrence: EU)
  Receive Date: 20251015
  Receipt Date: 20251015
  Transmission Date: 20260118
  Serious: Yes (Hospitalization, Other)
  Sender: DR REDDYS
  Company Number: None

PATIENT
  Age: 27 Year
  Sex: Male

DRUGS (13)
  1. PREGABALIN [Suspect]
     Active Substance: PREGABALIN
     Indication: Stiff person syndrome
     Dosage: 150 MG TWICE A DAY
  2. PREGABALIN [Suspect]
     Active Substance: PREGABALIN
     Dosage: 300 MILLIGRAM TWICE DAILY
  3. BROMAZEPAM [Suspect]
     Active Substance: BROMAZEPAM
     Indication: Stiff person syndrome
     Dosage: 3 MG TWICE DAILY
  4. BACLOFEN [Suspect]
     Active Substance: BACLOFEN
     Indication: Stiff person syndrome
     Dosage: 10 MG THREE TIMES A DAY
  5. BACLOFEN [Suspect]
     Active Substance: BACLOFEN
     Dosage: 10 TABLETS OF EACH PREPARATION PER DAY
  6. BACLOFEN [Suspect]
     Active Substance: BACLOFEN
     Dosage: 20 MG THREE TIMES A DAY
  7. PREGABALIN [Suspect]
     Active Substance: PREGABALIN
     Indication: Stiff person syndrome
     Dosage: 10 TABLETS OF EACH PREPARATION PER DAY
  8. BUSPIRONE [Concomitant]
     Active Substance: BUSPIRONE HYDROCHLORIDE
     Indication: Stiff person syndrome
     Dosage: 10 MG THREE TIMES A DAY
  9. DIAZEPAM [Concomitant]
     Active Substance: DIAZEPAM
     Indication: Stiff person syndrome
  10. DIAZEPAM [Concomitant]
     Active Substance: DIAZEPAM
     Indication: Somnolence
  11. Immunoglobulin [Concomitant]
     Indication: Stiff person syndrome
     Dosage: (0.4 G/KG B.W./DAY FOR 5 DAYS)
  12. AMOXICILLIN\CLAVULANIC ACID [Concomitant]
     Active Substance: AMOXICILLIN\CLAVULANIC ACID
     Indication: Product used for unknown indication
     Dosage: 875 MG + 125 MG TWICE DAILY
     Route: 048
  13. METRONIDAZOLE [Concomitant]
     Active Substance: METRONIDAZOLE
     Indication: Product used for unknown indication

REACTIONS (4)
  - COVID-19 pneumonia [Recovered/Resolved]
  - Sepsis [Recovering/Resolving]
  - Altered state of consciousness [Recovering/Resolving]
  - Off label use [Not Recovered/Not Resolved]
